FAERS Safety Report 11382561 (Version 2)
Quarter: 2017Q4

REPORT INFORMATION
  Report Type: Spontaneous
  Country: US (occurrence: US)
  Receive Date: 20150814
  Receipt Date: 20171006
  Transmission Date: 20180320
  Serious: Yes (Hospitalization, Other)
  Sender: FDA-Public Use
  Company Number: US-ELI_LILLY_AND_COMPANY-US201508002210

PATIENT
  Age: 20 Year
  Sex: Female

DRUGS (7)
  1. MAGNESIUM SULFATE. [Concomitant]
     Active Substance: MAGNESIUM SULFATE
     Indication: PRODUCT USED FOR UNKNOWN INDICATION
     Dosage: UNK, UNKNOWN
  2. BRETHESE COUGH [Concomitant]
     Indication: PRODUCT USED FOR UNKNOWN INDICATION
     Dosage: UNK, UNKNOWN
  3. VALTREX [Concomitant]
     Active Substance: VALACYCLOVIR HYDROCHLORIDE
     Indication: PRODUCT USED FOR UNKNOWN INDICATION
     Dosage: UNK, UNKNOWN
  4. PAXIL [Concomitant]
     Active Substance: PAROXETINE HYDROCHLORIDE
     Indication: PRODUCT USED FOR UNKNOWN INDICATION
  5. PROZAC [Suspect]
     Active Substance: FLUOXETINE HYDROCHLORIDE
     Indication: DEPRESSION
     Dosage: 20 MG, DAILY
     Route: 065
  6. PRENATABS RX [Concomitant]
     Active Substance: VITAMINS
     Indication: PRODUCT USED FOR UNKNOWN INDICATION
  7. BETAMETHASONE. [Concomitant]
     Active Substance: BETAMETHASONE
     Indication: PRODUCT USED FOR UNKNOWN INDICATION
     Dosage: UNK, UNKNOWN

REACTIONS (18)
  - Vulvovaginal discomfort [Unknown]
  - Placental disorder [Recovered/Resolved]
  - Back pain [Unknown]
  - Herpes simplex [Unknown]
  - Abdominal discomfort [Unknown]
  - Muscle spasms [Unknown]
  - Weight gain poor [Unknown]
  - Premature labour [Recovered/Resolved]
  - Abdominal pain upper [Unknown]
  - Cystitis [Unknown]
  - Pelvic pain [Unknown]
  - Vaginal discharge [Unknown]
  - Dysuria [Unknown]
  - Exposure during pregnancy [Recovered/Resolved]
  - Vulvovaginal burning sensation [Unknown]
  - Haemorrhage in pregnancy [Recovered/Resolved]
  - Premature rupture of membranes [Recovered/Resolved]
  - Broad ligament tear [Unknown]

NARRATIVE: CASE EVENT DATE: 19980616
